FAERS Safety Report 6539450-6 (Version None)
Quarter: 2010Q1

REPORT INFORMATION
  Report Type: 
  Country: None (occurrence: None)
  Receive Date: 20100115
  Receipt Date: 20100111
  Transmission Date: 20100710
  Serious: Yes (Hospitalization)
  Sender: FDA-Public Use
  Company Number: DE-ROCHE-675351

PATIENT
  Sex: Female
  Weight: 63.6 kg

DRUGS (4)
  1. HERCEPTIN [Suspect]
     Indication: BREAST CANCER
     Route: 042
     Dates: start: 20090908, end: 20091201
  2. EPIRUBICIN [Suspect]
     Indication: BREAST CANCER
     Dosage: PATIENT RECEIVED FOUR CYCLES.
     Route: 042
     Dates: start: 20090210, end: 20090414
  3. TAXOTERE [Suspect]
     Indication: BREAST CANCER
     Dosage: PATIENT RECEIVED FOUR CYCLES.
     Route: 042
     Dates: start: 20090505, end: 20090707
  4. ZOMETA [Concomitant]
     Indication: BREAST CANCER
     Route: 042
     Dates: start: 20090929, end: 20090929

REACTIONS (3)
  - CAROTID ARTERY DISSECTION [None]
  - CEREBROVASCULAR ACCIDENT [None]
  - THROMBOPHLEBITIS [None]
